FAERS Safety Report 23792297 (Version 2)
Quarter: 2024Q2

REPORT INFORMATION
  Report Type: Other
  Country: US (occurrence: None)
  Receive Date: 20240429
  Receipt Date: 20240430
  Transmission Date: 20240716
  Serious: Yes (Other)
  Sender: FDA-Public Use
  Company Number: US-ROCHE-3546744

PATIENT
  Age: 61 Year
  Sex: Female
  Weight: 70.37 kg

DRUGS (1)
  1. OCREVUS [Suspect]
     Active Substance: OCRELIZUMAB
     Indication: Primary progressive multiple sclerosis
     Dosage: DATE OF TREATMENT: 21/SEP/2023
     Route: 042
     Dates: start: 2021

REACTIONS (6)
  - Cough [Not Recovered/Not Resolved]
  - COVID-19 [Recovered/Resolved]
  - Impaired healing [Not Recovered/Not Resolved]
  - Knee deformity [Not Recovered/Not Resolved]
  - Eye disorder [Recovered/Resolved]
  - Multiple sclerosis [Unknown]

NARRATIVE: CASE EVENT DATE: 20210101
